FAERS Safety Report 6278310-5 (Version None)
Quarter: 2009Q3

REPORT INFORMATION
  Report Type: 
  Country: None (occurrence: None)
  Receive Date: 20090720
  Receipt Date: 20090720
  Transmission Date: 20100115
  Serious: Yes (Other)
  Sender: FDA-Public Use
  Company Number: None

PATIENT
  Age: 57 Year
  Sex: Male
  Weight: 106.5953 kg

DRUGS (1)
  1. LYRICA [Suspect]
     Indication: NEURALGIA
     Dosage: 75MG 3 A DAY PO 4 MONTHS OR SO
     Route: 048
     Dates: start: 20070301, end: 20070624

REACTIONS (7)
  - CONDITION AGGRAVATED [None]
  - NEURALGIA [None]
  - NO THERAPEUTIC RESPONSE [None]
  - OEDEMA PERIPHERAL [None]
  - PAIN [None]
  - RENAL DISORDER [None]
  - SWELLING [None]
